FAERS Safety Report 18578311 (Version 1)
Quarter: 2020Q4

REPORT INFORMATION
  Report Type: Other
  Country: CA (occurrence: CA)
  Receive Date: 20201204
  Receipt Date: 20201204
  Transmission Date: 20210114
  Serious: Yes (Hospitalization)
  Sender: FDA-Public Use
  Company Number: CA-ROCHE-2725176

PATIENT
  Sex: Female

DRUGS (15)
  1. RITUXAN [Suspect]
     Active Substance: RITUXIMAB
     Dosage: 4 DOSES PER COURSE
     Route: 042
     Dates: start: 20150114, end: 20150901
  2. RITUXAN [Suspect]
     Active Substance: RITUXIMAB
     Dosage: FOUR DOSES PER COURSE. NO PIR AVAILABLE ON 27/JUL/2016
     Route: 042
     Dates: start: 20150910
  3. SOLU-MEDROL [Concomitant]
     Active Substance: METHYLPREDNISOLONE SODIUM SUCCINATE
     Indication: PREMEDICATION
     Route: 042
     Dates: start: 20110504
  4. RITUXAN [Suspect]
     Active Substance: RITUXIMAB
     Dosage: FOUR DOSES PER COURSE. NO PIRS AVAILABLE SINCE 15/JUN/2017
     Route: 042
     Dates: start: 20170601
  5. LORAZEPAM. [Concomitant]
     Active Substance: LORAZEPAM
  6. RITUXAN [Suspect]
     Active Substance: RITUXIMAB
     Dosage: 4 DOSES
     Route: 042
     Dates: start: 20120926, end: 20121018
  7. RITUXAN [Suspect]
     Active Substance: RITUXIMAB
     Dosage: 4 DOSES PER COURSE
     Route: 042
     Dates: start: 20130530, end: 20140521
  8. RITUXAN [Suspect]
     Active Substance: RITUXIMAB
     Dosage: 4 DOSES PER COURSE
     Route: 042
     Dates: start: 20140528, end: 20140611
  9. SUBOXONE [Concomitant]
     Active Substance: BUPRENORPHINE HYDROCHLORIDE\NALOXONE HYDROCHLORIDE
  10. INSULIN [Concomitant]
     Active Substance: INSULIN NOS
     Indication: DIABETES MELLITUS
  11. RITUXAN [Suspect]
     Active Substance: RITUXIMAB
     Indication: RHEUMATOID ARTHRITIS
     Dosage: DAY 1, DAY 15
     Route: 042
     Dates: start: 20110504, end: 20120410
  12. BENADRYL [Concomitant]
     Active Substance: DIPHENHYDRAMINE HYDROCHLORIDE
     Indication: PREMEDICATION
     Route: 048
     Dates: start: 20110504
  13. RITUXAN [Suspect]
     Active Substance: RITUXIMAB
     Dosage: FOUR DOSES PER COURSE. NO PIRS AVAILABLE FROM 10/AUG/2016 UNTIL 01/JUN/2017
     Route: 042
  14. GABAPENTIN. [Concomitant]
     Active Substance: GABAPENTIN
     Indication: OPTIC NEUROPATHY
     Dates: start: 2017
  15. TYLENOL [Concomitant]
     Active Substance: ACETAMINOPHEN
     Indication: PREMEDICATION
     Route: 048
     Dates: start: 20110504

REACTIONS (1)
  - Appendicitis [Unknown]
